FAERS Safety Report 20911793 (Version 10)
Quarter: 2022Q3

REPORT INFORMATION
  Report Type: Spontaneous
  Country: CA (occurrence: CA)
  Receive Date: 20220603
  Receipt Date: 20220920
  Transmission Date: 20221027
  Serious: Yes (Hospitalization, Other)
  Sender: FDA-Public Use
  Company Number: CA-PFIZER INC-202200777260

PATIENT
  Age: 59 Year
  Sex: Female

DRUGS (4)
  1. BRAFTOVI [Suspect]
     Active Substance: ENCORAFENIB
     Indication: Metastatic malignant melanoma
     Dosage: 450 MG, 1X/DAY
     Route: 048
     Dates: start: 20220525
  2. BRAFTOVI [Suspect]
     Active Substance: ENCORAFENIB
     Dosage: 4 TABLETS, DAILY, TRY TAKING THEM AT NIGHT
     Route: 048
     Dates: end: 20220722
  3. BRAFTOVI [Suspect]
     Active Substance: ENCORAFENIB
     Dosage: TAKE 1 TABLET TODAY, 2 TOMORROW, AND IF ABLE, TO TAKE 3
  4. MEKTOVI [Suspect]
     Active Substance: BINIMETINIB
     Indication: Metastatic malignant melanoma
     Dosage: 45 MG, 2X/DAY
     Route: 048
     Dates: start: 20220525

REACTIONS (23)
  - Dehydration [Unknown]
  - Renal failure [Unknown]
  - Chills [Unknown]
  - Urinary tract infection [Unknown]
  - Pyrexia [Unknown]
  - Vomiting [Unknown]
  - Decreased appetite [Unknown]
  - Asthenia [Unknown]
  - Retinal oedema [Unknown]
  - Retinal deposits [Unknown]
  - Abdominal discomfort [Unknown]
  - Constipation [Unknown]
  - Muscular weakness [Unknown]
  - Vomiting [Unknown]
  - Feeling cold [Unknown]
  - Feeding disorder [Unknown]
  - Malnutrition [Unknown]
  - Nasopharyngitis [Unknown]
  - Chills [Unknown]
  - Illness [Unknown]
  - Off label use [Unknown]
  - Off label use [Unknown]
  - Product prescribing error [Unknown]
